FAERS Safety Report 16271491 (Version 2)
Quarter: 2019Q2

REPORT INFORMATION
  Report Type: Spontaneous
  Country: US (occurrence: US)
  Receive Date: 20190503
  Receipt Date: 20190603
  Transmission Date: 20190711
  Serious: No
  Sender: FDA-Public Use
  Company Number: US-ASTRAZENECA-2019SE55432

PATIENT
  Sex: Male
  Weight: 76.7 kg

DRUGS (2)
  1. AMLODIPINE [Concomitant]
     Active Substance: AMLODIPINE BESYLATE
     Indication: HYPERTENSION
     Route: 048
  2. SYMBICORT [Suspect]
     Active Substance: BUDESONIDE\FORMOTEROL FUMARATE DIHYDRATE
     Dosage: 160/4.5 MCG 1 PUFF EARLY IN THE MORNING AND 1 PUFF EARLY BEFORE HE WENT TO BED
     Route: 055
     Dates: start: 201902

REACTIONS (5)
  - Incorrect dose administered [Unknown]
  - Device failure [Unknown]
  - Hypertension [Unknown]
  - Device malfunction [Unknown]
  - Product dose omission [Not Recovered/Not Resolved]
